FAERS Safety Report 19873136 (Version 1)
Quarter: 2021Q3

REPORT INFORMATION
  Report Type: Spontaneous
  Country: CN (occurrence: CN)
  Receive Date: 20210922
  Receipt Date: 20210922
  Transmission Date: 20211014
  Serious: Yes (Other)
  Sender: FDA-Public Use
  Company Number: CN-SA-2021SA310973

PATIENT
  Age: 47 Year
  Sex: Male

DRUGS (1)
  1. TAMSULOSINA [Suspect]
     Active Substance: TAMSULOSIN HYDROCHLORIDE
     Indication: NOCTURIA
     Dosage: UNK
     Route: 048

REACTIONS (5)
  - Erectile dysfunction [Unknown]
  - Drug ineffective for unapproved indication [Unknown]
  - Pulse abnormal [Unknown]
  - Myalgia [Unknown]
  - Tongue disorder [Unknown]
